FAERS Safety Report 14585667 (Version 1)
Quarter: 2018Q1

REPORT INFORMATION
  Report Type: Spontaneous
  Country: US (occurrence: US)
  Receive Date: 20180228
  Receipt Date: 20180228
  Transmission Date: 20180509
  Serious: Yes (Death)
  Sender: FDA-Public Use
  Company Number: None

PATIENT
  Age: 56 Year
  Sex: Female
  Weight: 80.7 kg

DRUGS (2)
  1. AZACITIDINE. [Suspect]
     Active Substance: AZACITIDINE
     Indication: ACUTE MYELOID LEUKAEMIA
     Dosage: 75MG/M2 DAYS 1-7 IV
     Route: 042
     Dates: start: 20180215, end: 20180218
  2. PEMBROLIXUMAB [Suspect]
     Active Substance: PEMBROLIZUMAB

REACTIONS (18)
  - Oropharyngeal pain [None]
  - Mucosal inflammation [None]
  - Graft versus host disease [None]
  - Cough [None]
  - Hypoxia [None]
  - Respiratory failure [None]
  - Metabolic acidosis [None]
  - Sciatica [None]
  - Hyponatraemia [None]
  - Liver function test increased [None]
  - Rhinorrhoea [None]
  - Lower respiratory tract infection [None]
  - Blast crisis in myelogenous leukaemia [None]
  - Splenomegaly [None]
  - Haemoglobin decreased [None]
  - Blood lactate dehydrogenase increased [None]
  - Refusal of treatment by patient [None]
  - Febrile neutropenia [None]

NARRATIVE: CASE EVENT DATE: 20180217
